FAERS Safety Report 6171963-1 (Version None)
Quarter: 2009Q2

REPORT INFORMATION
  Report Type: 
  Country: None (occurrence: None)
  Receive Date: 20090429
  Receipt Date: 20090416
  Transmission Date: 20091009
  Serious: Yes (Hospitalization, Other)
  Sender: FDA-Public Use
  Company Number: PHHY2009US13820

PATIENT
  Sex: Male
  Weight: 68.027 kg

DRUGS (8)
  1. EXJADE [Suspect]
     Indication: MYELOFIBROSIS
     Dosage: 500 MG, QD
     Route: 048
  2. LACTULOSE [Concomitant]
  3. BLOOD TRANSFUSION, AUXILIARY PRODUCTS [Concomitant]
  4. DOXEPIN HCL [Concomitant]
     Dosage: 75 MG/DAY
  5. PROTONIX [Concomitant]
     Dosage: 40 MG, BID
  6. SPIRONOLACTONE [Concomitant]
     Dosage: 50 MG/DAY
  7. CALCIUM [Concomitant]
     Dosage: 500 MG/DAY
  8. RED BLOOD CELLS [Concomitant]

REACTIONS (14)
  - ABDOMINAL DISTENSION [None]
  - AGITATION [None]
  - ALANINE AMINOTRANSFERASE INCREASED [None]
  - AMMONIA INCREASED [None]
  - ASPARTATE AMINOTRANSFERASE INCREASED [None]
  - BLOOD ALKALINE PHOSPHATASE INCREASED [None]
  - BLOOD PRESSURE DECREASED [None]
  - BLOOD UREA INCREASED [None]
  - CONFUSIONAL STATE [None]
  - HAEMATOCRIT DECREASED [None]
  - HAEMOGLOBIN DECREASED [None]
  - HEPATIC ENZYME INCREASED [None]
  - MENTAL STATUS CHANGES [None]
  - PLEURAL EFFUSION [None]
